FAERS Safety Report 6818451-4 (Version None)
Quarter: 2010Q3

REPORT INFORMATION
  Report Type: 
  Country: None (occurrence: None)
  Receive Date: 20100706
  Receipt Date: 20080606
  Transmission Date: 20110219
  Serious: No
  Sender: FDA-Public Use
  Company Number: US-PFIZER INC-2008049198

PATIENT
  Sex: Female
  Weight: 9.07 kg

DRUGS (3)
  1. AZITHROMYCIN [Suspect]
     Indication: PYREXIA
  2. AZITHROMYCIN [Suspect]
     Indication: PHARYNGEAL ERYTHEMA
  3. PENTREXYL [Suspect]
     Dosage: 250MG/2ML
     Route: 030

REACTIONS (1)
  - RASH PAPULAR [None]
